FAERS Safety Report 6464820-4 (Version None)
Quarter: 2009Q4

REPORT INFORMATION
  Report Type: 
  Country: None (occurrence: None)
  Receive Date: 20091201
  Receipt Date: 20091119
  Transmission Date: 20100525
  Serious: Yes (Disabling)
  Sender: FDA-Public Use
  Company Number: US-ELI_LILLY_AND_COMPANY-US200911005412

PATIENT
  Sex: Female

DRUGS (1)
  1. FORTEO [Suspect]
     Indication: BODY HEIGHT DECREASED

REACTIONS (4)
  - BLINDNESS [None]
  - DIARRHOEA [None]
  - GAIT DISTURBANCE [None]
  - GASTRITIS [None]
